FAERS Safety Report 5001056-8 (Version None)
Quarter: 2006Q2

REPORT INFORMATION
  Report Type: 
  Country: None (occurrence: None)
  Receive Date: 20060512
  Receipt Date: 20060504
  Transmission Date: 20061013
  Serious: Yes (Other)
  Sender: FDA-Public Use
  Company Number: CH-GLAXOSMITHKLINE-B0423491A

PATIENT
  Sex: Male

DRUGS (10)
  1. REQUIP [Suspect]
     Indication: PARKINSON'S DISEASE
     Dosage: 2MG FOUR TIMES PER DAY
     Route: 048
  2. MADOPAR [Suspect]
     Indication: PARKINSON'S DISEASE
     Dosage: 1U PER DAY
     Route: 048
  3. MADOPAR [Suspect]
     Dosage: 250MG FIVE TIMES PER DAY
     Route: 048
  4. COMTAN [Suspect]
     Indication: PARKINSON'S DISEASE
     Dosage: 200MG FIVE TIMES PER DAY
     Route: 048
  5. DETRUSITOL [Suspect]
     Indication: URINARY INCONTINENCE
     Dosage: 4MG PER DAY
     Route: 048
     Dates: start: 20051112
  6. SEROQUEL [Suspect]
     Dosage: 100MG TWICE PER DAY
     Route: 048
  7. CHLORALDURAT [Suspect]
     Indication: ANXIETY DISORDER
     Dosage: 250MG TWICE PER DAY
     Route: 048
     Dates: start: 20060308
  8. LORAZEPAM [Suspect]
     Indication: ANXIETY DISORDER
     Dosage: 1U AS REQUIRED
     Route: 048
  9. PROSCAR [Concomitant]
     Indication: URINARY INCONTINENCE
     Dosage: 1U PER DAY
     Route: 048
  10. HEPATODORON [Concomitant]
     Dosage: 2U FIVE TIMES PER DAY
     Route: 065

REACTIONS (4)
  - ANXIETY [None]
  - DRUG INTERACTION [None]
  - FEAR [None]
  - HALLUCINATION, VISUAL [None]
